FAERS Safety Report 9350256 (Version 1)
Quarter: 2013Q2

REPORT INFORMATION
  Report Type: Spontaneous
  Country: ES (occurrence: ES)
  Receive Date: 20130617
  Receipt Date: 20130617
  Transmission Date: 20140414
  Serious: Yes (Other)
  Sender: FDA-Public Use
  Company Number: ES-ROCHE-1237042

PATIENT
  Sex: Female

DRUGS (2)
  1. LUCENTIS [Suspect]
     Indication: AGE-RELATED MACULAR DEGENERATION
     Route: 050
  2. LUCENTIS [Suspect]
     Route: 050
     Dates: start: 20130522

REACTIONS (1)
  - Eye swelling [Recovered/Resolved]
